FAERS Safety Report 11280518 (Version 1)
Quarter: 2015Q3

REPORT INFORMATION
  Report Type: Spontaneous
  Country: US (occurrence: US)
  Receive Date: 20150717
  Receipt Date: 20150717
  Transmission Date: 20151125
  Serious: No
  Sender: FDA-Public Use
  Company Number: US-JNJFOC-20150419089

PATIENT
  Age: 61 Year
  Sex: Male
  Weight: 111.13 kg

DRUGS (2)
  1. XARELTO [Suspect]
     Active Substance: RIVAROXABAN
     Indication: PULMONARY EMBOLISM
     Route: 048
     Dates: start: 20141222
  2. XARELTO [Suspect]
     Active Substance: RIVAROXABAN
     Indication: SPLENIC INFARCTION
     Route: 048
     Dates: start: 20141222

REACTIONS (2)
  - Product use issue [Unknown]
  - Prostatic specific antigen increased [Unknown]

NARRATIVE: CASE EVENT DATE: 20141222
